FAERS Safety Report 20539318 (Version 2)
Quarter: 2022Q2

REPORT INFORMATION
  Report Type: Report from Study
  Country: MX (occurrence: MX)
  Receive Date: 20220302
  Receipt Date: 20220420
  Transmission Date: 20220721
  Serious: Yes (Other)
  Sender: FDA-Public Use
  Company Number: MX-NOVARTISPH-NVSC2022MX048279

PATIENT
  Sex: Female
  Weight: 59 kg

DRUGS (2)
  1. GLYCOPYRRONIUM\INDACATEROL [Suspect]
     Active Substance: GLYCOPYRRONIUM\INDACATEROL
     Indication: Bronchitis
     Dosage: 1 DOSAGE FORM, QD
     Route: 055
     Dates: start: 202112
  2. GLYCOPYRRONIUM\INDACATEROL [Suspect]
     Active Substance: GLYCOPYRRONIUM\INDACATEROL
     Indication: Fibrosis
     Dosage: UNK
     Route: 065

REACTIONS (3)
  - Pneumonia fungal [Unknown]
  - Cough [Not Recovered/Not Resolved]
  - Product use in unapproved indication [Unknown]
